FAERS Safety Report 11070370 (Version 3)
Quarter: 2015Q2

REPORT INFORMATION
  Report Type: Report from Study
  Country: US (occurrence: US)
  Receive Date: 20150427
  Receipt Date: 20150522
  Transmission Date: 20150821
  Serious: Yes (Hospitalization)
  Sender: FDA-Public Use
  Company Number: US-TARO-2015TAR00348

PATIENT
  Age: 22 Year
  Sex: Female
  Weight: 116.1 kg

DRUGS (2)
  1. UNKNOWN (BLINDED) STUDY DRUG [Suspect]
     Active Substance: INVESTIGATIONAL PRODUCT
     Indication: PSORIASIS
     Dosage: 1 DOSAGE UNITS, 1X/DAY
     Route: 061
     Dates: start: 20150320
  2. VITAMIN E [Concomitant]
     Active Substance: .ALPHA.-TOCOPHEROL
     Dosage: 400 IU, 1X/DAY
     Route: 048

REACTIONS (1)
  - Syncope [Recovered/Resolved]

NARRATIVE: CASE EVENT DATE: 20150413
